FAERS Safety Report 6297568-X (Version None)
Quarter: 2009Q3

REPORT INFORMATION
  Report Type: 
  Country: None (occurrence: None)
  Receive Date: 20090805
  Receipt Date: 20090731
  Transmission Date: 20100115
  Serious: Yes (Hospitalization)
  Sender: FDA-Public Use
  Company Number: ZA-BAYER-200926993GPV

PATIENT
  Age: 49 Year
  Sex: Female

DRUGS (1)
  1. CIPRO [Suspect]
     Indication: CYSTITIS
     Route: 048

REACTIONS (8)
  - BLOOD ALBUMIN DECREASED [None]
  - BLOOD CHOLESTEROL INCREASED [None]
  - DIARRHOEA [None]
  - MALAISE [None]
  - NEPHROTIC SYNDROME [None]
  - PROTEIN TOTAL DECREASED [None]
  - PROTEINURIA [None]
  - PYREXIA [None]
